FAERS Safety Report 22222481 (Version 1)
Quarter: 2023Q2

REPORT INFORMATION
  Report Type: Report from Study
  Country: FR (occurrence: FR)
  Receive Date: 20230418
  Receipt Date: 20230418
  Transmission Date: 20230722
  Serious: Yes (Other)
  Sender: FDA-Public Use
  Company Number: FR-SUN PHARMACEUTICAL INDUSTRIES LTD-2023RR-384698

PATIENT
  Age: 52 Year
  Sex: Female

DRUGS (6)
  1. GEMCITABINE [Suspect]
     Active Substance: GEMCITABINE
     Indication: Sarcoma
     Dosage: 900 MILLIGRAM/SQ. METER, DAY 1 AND DAY 8, EVERY 21 DAYS
     Route: 065
     Dates: start: 20200401
  2. GEMCITABINE [Suspect]
     Active Substance: GEMCITABINE
     Dosage: 800 MILLIGRAM/SQ. METER, DAY 1 AND DAY 8, EVERY 21 DAYS
     Route: 065
     Dates: start: 20210929
  3. DOCETAXEL [Suspect]
     Active Substance: DOCETAXEL
     Indication: Sarcoma
     Dosage: 75 MILLIGRAM/SQ. METER, DAY 8, EVERY 21 DAYS
     Route: 065
     Dates: start: 20200401
  4. DOXORUBICIN [Suspect]
     Active Substance: DOXORUBICIN
     Indication: Sarcoma
     Dosage: 75 MILLIGRAM/SQ. METER, 1 DOSE/3 WEEKS
     Route: 065
     Dates: start: 202012
  5. SIROLIMUS [Suspect]
     Active Substance: SIROLIMUS
     Indication: Sarcoma
     Dosage: 5 MILLIGRAM, DAILY, EVERY 3 WEEKS
     Route: 065
     Dates: start: 20210929
  6. DACARBAZINE [Concomitant]
     Active Substance: DACARBAZINE
     Indication: Sarcoma
     Dosage: 750 MILLIGRAM/SQ. METER, 1 DOSE/3 WEEKS
     Route: 065
     Dates: start: 202012

REACTIONS (2)
  - Disease progression [Unknown]
  - Therapeutic product effect incomplete [Unknown]

NARRATIVE: CASE EVENT DATE: 20201201
